FAERS Safety Report 9470340 (Version 1)
Quarter: 2013Q3

REPORT INFORMATION
  Report Type: Spontaneous
  Country: GR (occurrence: GR)
  Receive Date: 20130822
  Receipt Date: 20130822
  Transmission Date: 20140515
  Serious: Yes (Other)
  Sender: FDA-Public Use
  Company Number: GR-BAYER-2013-101006

PATIENT
  Age: 69 Year
  Sex: Male

DRUGS (2)
  1. SORAFENIB (RAF KINASE INHIBITOR) [Suspect]
     Indication: GASTROINTESTINAL NEOPLASM
     Dosage: UNK
     Route: 048
  2. SORAFENIB (RAF KINASE INHIBITOR) [Suspect]
     Indication: GASTROINTESTINAL NEOPLASM
     Dosage: DOSE REDUCED (NOS)

REACTIONS (6)
  - Vitamin A deficiency [None]
  - Night blindness [Recovered/Resolved]
  - Xerophthalmia [None]
  - Diarrhoea [None]
  - Weight decreased [None]
  - Off label use [None]
